FAERS Safety Report 10566807 (Version 1)
Quarter: 2014Q4

REPORT INFORMATION
  Report Type: Spontaneous
  Country: US (occurrence: US)
  Receive Date: 20141105
  Receipt Date: 20141105
  Transmission Date: 20150529
  Serious: No
  Sender: FDA-Public Use
  Company Number: US-009507513-1410USA015227

PATIENT
  Age: 17 Year
  Sex: Female
  Weight: 58.96 kg

DRUGS (6)
  1. ADVAIR HFA [Concomitant]
     Active Substance: FLUTICASONE PROPIONATE\SALMETEROL XINAFOATE
  2. TYLENOL [Concomitant]
     Active Substance: ACETAMINOPHEN
  3. NEXPLANON [Suspect]
     Active Substance: ETONOGESTREL
     Indication: CONTRACEPTION
     Dosage: 68 MG, UNK
     Route: 059
     Dates: start: 20130806
  4. MIDOL (ASPIRIN (+) CAFFEINE (+) CINNAMEDRINE) [Concomitant]
  5. ALBUTEROL. [Concomitant]
     Active Substance: ALBUTEROL
  6. ALEVE [Concomitant]
     Active Substance: NAPROXEN SODIUM

REACTIONS (7)
  - Menorrhagia [Unknown]
  - Nipple pain [Recovered/Resolved]
  - Metrorrhagia [Unknown]
  - Vaginal haemorrhage [Unknown]
  - Skin discolouration [Unknown]
  - Unintended pregnancy [Unknown]
  - Menorrhagia [Unknown]

NARRATIVE: CASE EVENT DATE: 201407
